FAERS Safety Report 4853353-4 (Version None)
Quarter: 2005Q4

REPORT INFORMATION
  Report Type: 
  Country: None (occurrence: None)
  Receive Date: 20051212
  Receipt Date: 20051129
  Transmission Date: 20060501
  Serious: Yes (Other)
  Sender: FDA-Public Use
  Company Number: US200511003259

PATIENT
  Age: 89 Year
  Sex: Female

DRUGS (2)
  1. EVISTA [Suspect]
  2. BISPHOSPHONATES [Concomitant]

REACTIONS (5)
  - BLOOD PRESSURE INCREASED [None]
  - FEMUR FRACTURE [None]
  - HIP FRACTURE [None]
  - OEDEMA [None]
  - UPPER LIMB FRACTURE [None]
